FAERS Safety Report 20644492 (Version 1)
Quarter: 2022Q1

REPORT INFORMATION
  Report Type: Spontaneous
  Country: US (occurrence: None)
  Receive Date: 20220328
  Receipt Date: 20220328
  Transmission Date: 20220423
  Serious: No
  Sender: FDA-Public Use
  Company Number: None

PATIENT
  Sex: Male

DRUGS (1)
  1. NUBEQA [Suspect]
     Active Substance: DAROLUTAMIDE
     Indication: Prostate cancer
     Dosage: FREQUENCY : TWICE A DAY;?
     Route: 048
     Dates: start: 20220318

REACTIONS (2)
  - Gastrointestinal haemorrhage [None]
  - Therapy interrupted [None]
